FAERS Safety Report 24094023 (Version 2)
Quarter: 2025Q3

REPORT INFORMATION
  Report Type: Spontaneous
  Country: TR (occurrence: TR)
  Receive Date: 20240716
  Receipt Date: 20250712
  Transmission Date: 20251020
  Serious: Yes (Death, Life-Threatening, Hospitalization, Other)
  Sender: STRIDES
  Company Number: None

PATIENT
  Age: 17 Year
  Sex: Female

DRUGS (5)
  1. SERTRALINE [Suspect]
     Active Substance: SERTRALINE HYDROCHLORIDE
     Indication: Suicide attempt
     Route: 048
  2. METFORMIN [Suspect]
     Active Substance: METFORMIN HYDROCHLORIDE
     Indication: Suicide attempt
     Route: 048
  3. FLUOXETINE [Suspect]
     Active Substance: FLUOXETINE HYDROCHLORIDE
     Indication: Suicide attempt
     Route: 048
  4. RISPERIDONE [Suspect]
     Active Substance: RISPERIDONE
     Indication: Suicide attempt
     Route: 048
  5. FLUVOXAMINE [Suspect]
     Active Substance: FLUVOXAMINE
     Indication: Suicide attempt
     Route: 048

REACTIONS (11)
  - Completed suicide [Fatal]
  - Lactic acidosis [Fatal]
  - Metabolic acidosis [Fatal]
  - Intentional overdose [Fatal]
  - Electrocardiogram abnormal [Recovered/Resolved]
  - Unmasking of previously unidentified disease [None]
  - Electrocardiogram QRS complex prolonged [Unknown]
  - Brugada syndrome [Recovered/Resolved]
  - Bundle branch block right [Unknown]
  - Lethargy [Unknown]
  - Off label use [Unknown]
